FAERS Safety Report 21098520 (Version 1)
Quarter: 2022Q3

REPORT INFORMATION
  Report Type: Spontaneous
  Country: US (occurrence: US)
  Receive Date: 20220719
  Receipt Date: 20220719
  Transmission Date: 20221027
  Serious: No
  Sender: FDA-Public Use
  Company Number: US-AUROBINDO-AUR-APL-2022-012445

PATIENT

DRUGS (1)
  1. ATOMOXETINE [Suspect]
     Active Substance: ATOMOXETINE
     Indication: Product used for unknown indication
     Dosage: UNK
     Route: 065

REACTIONS (8)
  - Hypoaesthesia oral [Unknown]
  - Tongue discomfort [Unknown]
  - Dry mouth [Unknown]
  - Thirst [Unknown]
  - Decreased appetite [Unknown]
  - Ageusia [Unknown]
  - Drug ineffective [Unknown]
  - Memory impairment [Unknown]
